FAERS Safety Report 4846848-0 (Version None)
Quarter: 2005Q4

REPORT INFORMATION
  Report Type: 
  Country: None (occurrence: None)
  Receive Date: 20051207
  Receipt Date: 20050223
  Transmission Date: 20060501
  Serious: Yes (Disabling, Other)
  Sender: FDA-Public Use
  Company Number: US-BRISTOL-MYERS SQUIBB COMPANY-12874491

PATIENT
  Age: 52 Year
  Sex: Male

DRUGS (10)
  1. VIDEX EC [Suspect]
     Indication: HIV INFECTION
     Route: 048
     Dates: start: 20020801, end: 20041223
  2. VIREAD [Suspect]
     Route: 048
     Dates: start: 20020201, end: 20041223
  3. EPIVIR [Concomitant]
     Dates: end: 20041201
  4. KALETRA [Concomitant]
     Dates: end: 20041201
  5. NASACORT AQ [Concomitant]
  6. TERAZOSIN [Concomitant]
  7. BACLOFEN [Concomitant]
  8. FOLIC ACID [Concomitant]
  9. COUMADIN [Concomitant]
  10. ANDROGEL [Concomitant]

REACTIONS (1)
  - LACTIC ACIDOSIS [None]
